FAERS Safety Report 15826557 (Version 2)
Quarter: 2019Q1

REPORT INFORMATION
  Report Type: Report from Study
  Country: BE (occurrence: BE)
  Receive Date: 20190115
  Receipt Date: 20190227
  Transmission Date: 20190417
  Serious: Yes (Other)
  Sender: FDA-Public Use
  Company Number: BE-SA-2017SA112977

PATIENT
  Age: 32 Year
  Sex: Female

DRUGS (1)
  1. ALEMTUZUMAB [Suspect]
     Active Substance: ALEMTUZUMAB
     Indication: MULTIPLE SCLEROSIS
     Dosage: UNK UNK,UNK
     Route: 041
     Dates: start: 20150922

REACTIONS (16)
  - Oropharyngeal pain [Unknown]
  - Dysphagia [Unknown]
  - Back pain [Unknown]
  - Tremor [Unknown]
  - Thrombocytopenia [Unknown]
  - Thyroid disorder [Unknown]
  - Rhinorrhoea [Unknown]
  - Arthralgia [Unknown]
  - Nasopharyngitis [Unknown]
  - Cough [Unknown]
  - Spinal cord disorder [Unknown]
  - Muscular weakness [Unknown]
  - Hyperthyroidism [Not Recovered/Not Resolved]
  - Platelet count abnormal [Unknown]
  - Paraesthesia [Unknown]
  - Pain in extremity [Unknown]

NARRATIVE: CASE EVENT DATE: 201708
